FAERS Safety Report 5568632-5 (Version None)
Quarter: 2007Q4

REPORT INFORMATION
  Report Type: 
  Country: None (occurrence: None)
  Receive Date: 20071220
  Receipt Date: 20071207
  Transmission Date: 20080405
  Serious: Yes (Death)
  Sender: FDA-Public Use
  Company Number: FR-ASTRAZENECA-2005CG00431

PATIENT
  Age: 1 Hour
  Sex: Male
  Weight: 2.9 kg

DRUGS (6)
  1. NAROPEINE [Suspect]
     Indication: EPIDURAL ANAESTHESIA
     Route: 064
     Dates: start: 20041219, end: 20041219
  2. ERYTHROMYCIN ETHYLSUCCINATE [Suspect]
     Indication: ANTIBIOTIC PROPHYLAXIS
     Route: 064
     Dates: start: 20041219, end: 20041219
  3. SUFENTA [Suspect]
     Indication: EPIDURAL ANAESTHESIA
     Route: 064
     Dates: start: 20041219, end: 20041219
  4. NUBAIN [Suspect]
     Indication: PAIN
     Route: 064
     Dates: start: 20041219, end: 20041219
  5. PERFALGAN [Suspect]
     Indication: LABOUR PAIN
     Route: 064
     Dates: start: 20041219, end: 20041219
  6. ATARAX [Suspect]
     Indication: ANXIETY
     Route: 064
     Dates: start: 20041219, end: 20041219

REACTIONS (1)
  - SUDDEN DEATH [None]
